FAERS Safety Report 6207455-0 (Version None)
Quarter: 2009Q2

REPORT INFORMATION
  Report Type: 
  Country: None (occurrence: None)
  Receive Date: 20090528
  Receipt Date: 20090518
  Transmission Date: 20091009
  Serious: Yes (Life-Threatening, Hospitalization)
  Sender: FDA-Public Use
  Company Number: DE-TYCO HEALTHCARE/MALLINCKRODT-T200901064

PATIENT

DRUGS (6)
  1. METHADOSE [Suspect]
     Indication: SUBSTANCE ABUSE
     Dosage: 157.5 MG, QD
     Route: 048
     Dates: end: 20081231
  2. LUVOX [Suspect]
     Indication: DRUG USE FOR UNKNOWN INDICATION
     Route: 048
  3. ATAZANAVIR SULFATE [Suspect]
     Indication: HIV INFECTION
     Dosage: 300 MG, QD
     Route: 048
     Dates: start: 20080801
  4. RITONAVIR [Suspect]
     Indication: HIV INFECTION
     Dosage: 100 MG, QD
     Route: 048
     Dates: start: 20080801
  5. NALOXONE [Suspect]
     Indication: DRUG DEPENDENCE
     Dosage: UNK
     Dates: start: 20081227
  6. EMTRICITABINE W/TENOFOVIR DISOPROXIL FUMARATE [Concomitant]
     Indication: HIV INFECTION
     Dosage: UNK
     Route: 048
     Dates: start: 20080801

REACTIONS (9)
  - ACUTE PULMONARY OEDEMA [None]
  - COMA [None]
  - CORONARY ARTERY STENOSIS [None]
  - ELECTROCARDIOGRAM QT PROLONGED [None]
  - HEPATIC LESION [None]
  - HEPATOMEGALY [None]
  - SPLENOMEGALY [None]
  - STRESS CARDIOMYOPATHY [None]
  - TORSADE DE POINTES [None]
